FAERS Safety Report 12089586 (Version 4)
Quarter: 2016Q2

REPORT INFORMATION
  Report Type: Spontaneous
  Country: US (occurrence: US)
  Receive Date: 20160218
  Receipt Date: 20160406
  Transmission Date: 20160815
  Serious: No
  Sender: FDA-Public Use
  Company Number: US-PFIZER INC-2016095029

PATIENT
  Age: 52 Year
  Sex: Female
  Weight: 48.53 kg

DRUGS (2)
  1. ADVIL [Suspect]
     Active Substance: IBUPROFEN
     Indication: HEADACHE
     Dosage: 600 MG, DAILY (3 TABS WITHIN 24 HRS)
  2. ADVIL [Suspect]
     Active Substance: IBUPROFEN
     Indication: LIGAMENT SPRAIN

REACTIONS (15)
  - Faeces discoloured [Unknown]
  - Nausea [Unknown]
  - Chills [Unknown]
  - Abdominal pain upper [Unknown]
  - Vomiting [Unknown]
  - Malaise [Unknown]
  - Drug ineffective [Unknown]
  - Depressed mood [Unknown]
  - Abdominal pain lower [Unknown]
  - Back pain [Unknown]
  - Pain [Unknown]
  - Abdominal discomfort [Unknown]
  - Renal pain [Unknown]
  - Pyrexia [Unknown]
  - Dizziness [Unknown]
